FAERS Safety Report 7237879-4 (Version None)
Quarter: 2011Q1

REPORT INFORMATION
  Report Type: 
  Country: None (occurrence: None)
  Receive Date: 20110121
  Receipt Date: 20110113
  Transmission Date: 20110831
  Serious: Yes (Other)
  Sender: FDA-Public Use
  Company Number: JP-ROCHE-754349

PATIENT
  Sex: Female

DRUGS (20)
  1. ACTEMRA [Suspect]
     Route: 041
     Dates: start: 20090206, end: 20090206
  2. LENDORMIN [Concomitant]
     Route: 048
  3. ACINON [Concomitant]
     Route: 048
  4. ACTEMRA [Suspect]
     Route: 041
     Dates: start: 20080903, end: 20080903
  5. ACTEMRA [Suspect]
     Route: 041
     Dates: start: 20090408, end: 20090408
  6. ACTEMRA [Suspect]
     Route: 041
     Dates: start: 20090514, end: 20090514
  7. METHOTREXATE [Suspect]
     Indication: RHEUMATOID ARTHRITIS
     Route: 048
     Dates: start: 20080509
  8. SOLON [Concomitant]
     Dosage: FORM: MINUTE GRAIN
     Route: 048
  9. TICLOPIDINE HYDROCHLORIDE [Concomitant]
     Dosage: FORM: PERORAL AGENT.
     Route: 048
  10. BENET [Concomitant]
     Route: 048
  11. ACTEMRA [Suspect]
     Route: 041
     Dates: start: 20081110, end: 20081110
  12. ACTEMRA [Suspect]
     Route: 041
     Dates: start: 20081208, end: 20081208
  13. HYPEN [Concomitant]
     Route: 048
  14. ACTEMRA [Suspect]
     Route: 041
     Dates: start: 20081008, end: 20081008
  15. ACTEMRA [Suspect]
     Route: 041
     Dates: start: 20090108, end: 20090108
  16. ACTEMRA [Suspect]
     Route: 041
     Dates: start: 20090306, end: 20090306
  17. FOLIAMIN [Concomitant]
     Route: 048
  18. ACTEMRA [Suspect]
     Indication: RHEUMATOID ARTHRITIS
     Route: 041
     Dates: start: 20080804, end: 20080804
  19. ACTEMRA [Suspect]
     Route: 041
     Dates: start: 20090708, end: 20090708
  20. PREDNISOLONE [Suspect]
     Indication: RHEUMATOID ARTHRITIS
     Route: 048
     Dates: start: 20080410

REACTIONS (1)
  - KNEE ARTHROPLASTY [None]
